FAERS Safety Report 4447985-5 (Version None)
Quarter: 2004Q3

REPORT INFORMATION
  Report Type: 
  Country: None (occurrence: None)
  Receive Date: 20040818
  Receipt Date: 20030903
  Transmission Date: 20050211
  Serious: Yes (Hospitalization, Other)
  Sender: FDA-Public Use
  Company Number: 2003168132US

PATIENT
  Age: 63 Year
  Sex: Female
  Weight: 77.1 kg

DRUGS (4)
  1. AZULFIDINE EN-TABS [Suspect]
     Indication: CROHN'S DISEASE
     Dates: start: 19920101, end: 20010101
  2. CELEXA [Concomitant]
  3. FLOVENT [Concomitant]
  4. CLARINEX [Concomitant]

REACTIONS (1)
  - PANCREATITIS [None]
